FAERS Safety Report 6475781-6 (Version None)
Quarter: 2009Q4

REPORT INFORMATION
  Report Type: 
  Country: None (occurrence: None)
  Receive Date: 20091204
  Receipt Date: 20091125
  Transmission Date: 20100525
  Serious: Yes (Hospitalization)
  Sender: FDA-Public Use
  Company Number: US-ABBOTT-09P-163-0610510-00

PATIENT
  Sex: Female
  Weight: 23.608 kg

DRUGS (1)
  1. DEPAKOTE [Suspect]
     Indication: EPILEPSY
     Dosage: 500 TO 625 MG
     Dates: start: 20050101

REACTIONS (1)
  - MUSCULOSKELETAL STIFFNESS [None]
